FAERS Safety Report 20358820 (Version 4)
Quarter: 2022Q4

REPORT INFORMATION
  Report Type: Spontaneous
  Country: US (occurrence: US)
  Receive Date: 20220120
  Receipt Date: 20221116
  Transmission Date: 20230112
  Serious: No
  Sender: FDA-Public Use
  Company Number: US-BRISTOL-MYERS SQUIBB COMPANY-BMS-2022-008422

PATIENT
  Age: 53 Year
  Sex: Female

DRUGS (1)
  1. ORENCIA [Suspect]
     Active Substance: ABATACEPT
     Indication: Rheumatoid arthritis
     Dosage: EXPIRY DATE FOR BATCH NUMBER: 31-MAR-2024
     Route: 058
     Dates: start: 20211215

REACTIONS (3)
  - Joint swelling [Unknown]
  - Arthralgia [Unknown]
  - Rheumatoid arthritis [Unknown]
